FAERS Safety Report 5879621-5 (Version None)
Quarter: 2008Q3

REPORT INFORMATION
  Report Type: 
  Country: None (occurrence: None)
  Receive Date: 20080911
  Receipt Date: 20080911
  Transmission Date: 20090109
  Serious: Yes (Life-Threatening)
  Sender: FDA-Public Use
  Company Number: None

PATIENT
  Age: 84 Year
  Sex: Female
  Weight: 63.5036 kg

DRUGS (1)
  1. GEODON [Suspect]
     Indication: SCHIZOPHRENIA
     Dosage: INJECTION
     Route: 042
     Dates: start: 20080827, end: 20080829

REACTIONS (3)
  - HALLUCINATION [None]
  - MENTAL DISORDER [None]
  - PSYCHOTIC DISORDER [None]
